FAERS Safety Report 25068013 (Version 1)
Quarter: 2025Q1

REPORT INFORMATION
  Report Type: Spontaneous
  Country: PT (occurrence: PT)
  Receive Date: 20250312
  Receipt Date: 20250312
  Transmission Date: 20250409
  Serious: Yes (Other)
  Sender: MYLAN
  Company Number: PT-OTSUKA-2025_004195

PATIENT
  Age: 21 Year
  Sex: Female

DRUGS (2)
  1. ARIPIPRAZOLE [Suspect]
     Active Substance: ARIPIPRAZOLE
     Indication: Product used for unknown indication
     Dosage: 30 MILLIGRAM, QD
  2. AMISULPRIDE [Suspect]
     Active Substance: AMISULPRIDE
     Indication: Product used for unknown indication
     Dosage: 400 MILLIGRAM, QD

REACTIONS (5)
  - Myasthenia gravis [Unknown]
  - Psychotic disorder [Recovering/Resolving]
  - Respiratory disorder [Unknown]
  - Muscular weakness [Recovering/Resolving]
  - Therapeutic product effect decreased [Unknown]
